FAERS Safety Report 6013582-3 (Version None)
Quarter: 2008Q4

REPORT INFORMATION
  Report Type: 
  Country: None (occurrence: None)
  Receive Date: 20081219
  Receipt Date: 20081217
  Transmission Date: 20090506
  Serious: Yes (Hospitalization, Other)
  Sender: FDA-Public Use
  Company Number: CA-JNJFOC-20081105869

PATIENT
  Sex: Male
  Weight: 70.31 kg

DRUGS (5)
  1. DURAGESIC-100 [Suspect]
     Indication: FIBROMYALGIA
     Route: 062
  2. DURAGESIC-100 [Suspect]
     Indication: PAIN
     Route: 062
  3. LORAZEPAM [Concomitant]
     Indication: DRUG USE FOR UNKNOWN INDICATION
     Dosage: 1-1.5 MG AT BEDTIME
  4. BACLOFEN [Concomitant]
     Indication: DRUG USE FOR UNKNOWN INDICATION
  5. PERCOCET [Concomitant]
     Indication: DRUG USE FOR UNKNOWN INDICATION
     Dosage: TWO TABLETS IN AM, 1 TABLET AT NOON  1.5 TABLETS AT BEDTIME
     Route: 048

REACTIONS (18)
  - DIZZINESS [None]
  - DYSPNOEA [None]
  - EUPHORIC MOOD [None]
  - FATIGUE [None]
  - HEADACHE [None]
  - INAPPROPRIATE SCHEDULE OF DRUG ADMINISTRATION [None]
  - MALAISE [None]
  - NAUSEA [None]
  - PAIN [None]
  - PALPITATIONS [None]
  - PANIC DISORDER [None]
  - PRODUCT QUALITY ISSUE [None]
  - PSYCHOMOTOR HYPERACTIVITY [None]
  - RESPIRATORY DEPRESSION [None]
  - SEDATION [None]
  - SOMNOLENCE [None]
  - TACHYCARDIA [None]
  - TREMOR [None]
